FAERS Safety Report 8489663-1 (Version None)
Quarter: 2012Q3

REPORT INFORMATION
  Report Type: 
  Country: None (occurrence: None)
  Receive Date: 20120705
  Receipt Date: 20120622
  Transmission Date: 20120928
  Serious: Yes (Hospitalization)
  Sender: FDA-Public Use
  Company Number: US-GLAXOSMITHKLINE-A0779281A

PATIENT
  Age: 43 Year
  Sex: Male
  Weight: 113.6 kg

DRUGS (5)
  1. METFORMIN HCL [Concomitant]
     Dates: end: 20070601
  2. NORVASC [Concomitant]
  3. AVANDIA [Suspect]
     Indication: DIABETES MELLITUS
     Dosage: 4MG PER DAY
     Route: 048
     Dates: start: 20070301, end: 20070601
  4. LISINOPRIL [Concomitant]
     Dates: end: 20070601
  5. PRILOSEC [Concomitant]

REACTIONS (4)
  - ACUTE CORONARY SYNDROME [None]
  - MYOCARDIAL INFARCTION [None]
  - CORONARY ARTERY DISEASE [None]
  - VENTRICULAR TACHYCARDIA [None]
